FAERS Safety Report 8298401-7 (Version None)
Quarter: 2012Q2

REPORT INFORMATION
  Report Type: 
  Country: None (occurrence: None)
  Receive Date: 20120419
  Receipt Date: 20120418
  Transmission Date: 20120825
  Serious: Yes (Hospitalization)
  Sender: FDA-Public Use
  Company Number: US-PFIZER INC-2012096727

PATIENT
  Sex: Female
  Weight: 135 kg

DRUGS (16)
  1. ACTOS [Concomitant]
     Indication: DIABETES MELLITUS
     Dosage: 30 MG, DAILY
  2. BYETTA [Concomitant]
     Indication: DIABETES MELLITUS
     Dosage: 10 UG, 2X/DAY
  3. QUINAPRIL [Concomitant]
     Indication: BLOOD PRESSURE ABNORMAL
     Dosage: 40 MG, 2X/DAY
  4. CYCLOBENZAPRINE [Concomitant]
     Indication: MUSCLE RELAXANT THERAPY
     Dosage: 10 MG, 3X/DAY
  5. WELLBUTRIN [Concomitant]
     Indication: DEPRESSION
     Dosage: 100 MG, DAILY
  6. SERTRALINE HYDROCHLORIDE [Concomitant]
     Indication: DEPRESSION
     Dosage: 100 MG, 2X/DAY
  7. PRAVASTATIN [Concomitant]
     Indication: BLOOD CHOLESTEROL ABNORMAL
     Dosage: 80 MG, DAILY
  8. HYDROCHLOROTHIAZIDE [Concomitant]
     Indication: BLOOD PRESSURE ABNORMAL
     Dosage: 25 MG, DAILY
  9. AMITRIPTYLINE [Concomitant]
     Indication: ANXIETY
     Dosage: 100 MG, DAILY
  10. AMITRIPTYLINE [Concomitant]
     Indication: SLEEP DISORDER
  11. ZOLPIDEM TARTRATE [Concomitant]
     Indication: SLEEP DISORDER
     Dosage: 10 MG, AS NEEDED
  12. POTASSIUM [Concomitant]
     Dosage: 20 MG, DAILY
  13. LIPITOR [Suspect]
     Indication: BLOOD CHOLESTEROL INCREASED
     Route: 048
  14. GLIPIZIDE [Concomitant]
     Indication: DIABETES MELLITUS
     Dosage: 5 MG, 3X/DAY
  15. HYDROCHLOROTHIAZIDE [Concomitant]
     Indication: DIURETIC THERAPY
  16. ATENOLOL [Concomitant]
     Indication: BLOOD PRESSURE ABNORMAL
     Dosage: 25 MG, 2X/DAY

REACTIONS (1)
  - CHEST PAIN [None]
